FAERS Safety Report 8257039-8 (Version None)
Quarter: 2012Q2

REPORT INFORMATION
  Report Type: 
  Country: None (occurrence: None)
  Receive Date: 20120403
  Receipt Date: 20120328
  Transmission Date: 20120825
  Serious: Yes (Other)
  Sender: FDA-Public Use
  Company Number: JP-GLAXOSMITHKLINE-B0768028A

PATIENT
  Sex: Female

DRUGS (7)
  1. ZOLOFT [Concomitant]
     Indication: ANXIETY
     Dosage: 100MG PER DAY
     Route: 048
     Dates: start: 20111031
  2. LAMICTAL [Suspect]
     Indication: DEPRESSION
     Dosage: 25MG PER DAY
     Route: 048
     Dates: start: 20111031, end: 20111123
  3. DOGMATYL [Concomitant]
     Indication: DECREASED APPETITE
     Dosage: 100MG PER DAY
     Route: 048
     Dates: start: 20111031, end: 20111123
  4. SEPAZON [Concomitant]
     Indication: ANXIETY
     Dosage: 4MG PER DAY
     Route: 048
     Dates: start: 20111031
  5. REMERON [Concomitant]
     Dosage: 30MG PER DAY
     Route: 048
     Dates: start: 20111108
  6. REMERON [Concomitant]
     Indication: DEPRESSIVE SYMPTOM
     Route: 048
     Dates: start: 20111031, end: 20111107
  7. RHYTHMY [Concomitant]
     Indication: INSOMNIA
     Dosage: 2MG PER DAY
     Route: 048
     Dates: start: 20111031

REACTIONS (10)
  - OBSTRUCTIVE AIRWAYS DISORDER [None]
  - PHARYNGITIS [None]
  - EOSINOPHIL COUNT INCREASED [None]
  - FACE OEDEMA [None]
  - RASH [None]
  - OROPHARYNGEAL PAIN [None]
  - PHARYNGEAL ERYTHEMA [None]
  - PYREXIA [None]
  - ASTHENIA [None]
  - URTICARIA [None]
